FAERS Safety Report 8434773-8 (Version None)
Quarter: 2012Q2

REPORT INFORMATION
  Report Type: 
  Country: None (occurrence: None)
  Receive Date: 20120614
  Receipt Date: 20120604
  Transmission Date: 20120825
  Serious: Yes (Hospitalization)
  Sender: FDA-Public Use
  Company Number: FR-JNJFOC-20120603165

PATIENT
  Age: 38 Year
  Sex: Male

DRUGS (4)
  1. INDOMETHACIN [Suspect]
     Indication: ANTIINFLAMMATORY THERAPY
     Route: 065
     Dates: start: 20120126
  2. REMICADE [Suspect]
     Indication: ANKYLOSING SPONDYLITIS
     Dosage: 23 INFLIXIMAB COURSES
     Route: 042
     Dates: start: 20120126
  3. NAPROXEN [Concomitant]
     Indication: ANTIINFLAMMATORY THERAPY
     Route: 065
  4. REMICADE [Suspect]
     Route: 042
     Dates: start: 20080501, end: 20120101

REACTIONS (3)
  - TOXICITY TO VARIOUS AGENTS [None]
  - SUICIDE ATTEMPT [None]
  - PAIN [None]
